FAERS Safety Report 21845259 (Version 1)
Quarter: 2023Q1

REPORT INFORMATION
  Report Type: Report from Study
  Country: US (occurrence: US)
  Receive Date: 20230110
  Receipt Date: 20230110
  Transmission Date: 20230417
  Serious: No
  Sender: FDA-Public Use
  Company Number: US-ABBVIE-4231172

PATIENT
  Sex: Female

DRUGS (1)
  1. SKYRIZI [Suspect]
     Active Substance: RISANKIZUMAB-RZAA
     Indication: Psoriasis
     Dosage: ALL EVENTS WERE STARTED ON AN UNKNOWN DATE IN 2022
     Route: 058
     Dates: start: 20220711

REACTIONS (3)
  - COVID-19 [Recovering/Resolving]
  - Nasopharyngitis [Unknown]
  - Drug ineffective [Recovering/Resolving]
